FAERS Safety Report 18177340 (Version 1)
Quarter: 2020Q3

REPORT INFORMATION
  Report Type: Spontaneous
  Country: BR (occurrence: BR)
  Receive Date: 20200820
  Receipt Date: 20200820
  Transmission Date: 20201103
  Serious: Yes (Other)
  Sender: FDA-Public Use
  Company Number: BR-BAUSCH-BL-2020-023220

PATIENT
  Age: 70 Year
  Sex: Male
  Weight: 80 kg

DRUGS (4)
  1. EFURIX [Suspect]
     Active Substance: FLUOROURACIL
     Dosage: 1 APPLICATION TWICE A DAY FOR 21 DAYS (PRESCRIBED) ON FACE EXCEPT THE CHIN AREA
     Route: 061
     Dates: start: 20200722, end: 20200809
  2. ALLOPURINOL. [Concomitant]
     Active Substance: ALLOPURINOL
     Indication: GOUT
     Dosage: 1 TABLET A DAY
  3. SIMVASTATIN. [Concomitant]
     Active Substance: SIMVASTATIN
     Indication: BLOOD CHOLESTEROL INCREASED
     Dosage: 1 TABLET A DAY
  4. EFURIX [Suspect]
     Active Substance: FLUOROURACIL
     Indication: ACTINIC KERATOSIS
     Dosage: USED BEFORE, APPLIED TO CHEST AND HAD NO ADVERSE EVENTS
     Route: 061

REACTIONS (8)
  - Application site erythema [Not Recovered/Not Resolved]
  - Application site pruritus [Recovering/Resolving]
  - Insomnia [Recovering/Resolving]
  - Application site scab [Not Recovered/Not Resolved]
  - Blood pressure increased [Recovering/Resolving]
  - Application site discharge [Recovering/Resolving]
  - Swelling face [Recovering/Resolving]
  - Application site pain [Not Recovered/Not Resolved]

NARRATIVE: CASE EVENT DATE: 2020
